FAERS Safety Report 25237430 (Version 1)
Quarter: 2025Q2

REPORT INFORMATION
  Report Type: Spontaneous
  Country: CN (occurrence: CN)
  Receive Date: 20250425
  Receipt Date: 20250425
  Transmission Date: 20250717
  Serious: Yes (Death, Life-Threatening, Hospitalization)
  Sender: SINOTHERAPEUTICS INC.
  Company Number: CN-SNT-000419

PATIENT
  Age: 8 Year
  Sex: Male

DRUGS (14)
  1. POSACONAZOLE [Suspect]
     Active Substance: POSACONAZOLE
     Indication: Infection prophylaxis
     Route: 048
  2. TEICOPLANIN [Suspect]
     Active Substance: TEICOPLANIN
     Indication: Infection prophylaxis
     Dosage: THREE DOSES OF 10 MG PER KG TEICOPLANIN EVERY 12 H ?FOLLOWED BY 10 MG PER KG DAILY
     Route: 065
  3. ACYCLOVIR [Suspect]
     Active Substance: ACYCLOVIR
     Indication: Infection prophylaxis
     Dosage: 0.2 G ACYCLOVIR THREE TIMES A ?DAY,
     Route: 065
  4. CASPOFUNGIN [Suspect]
     Active Substance: CASPOFUNGIN
     Indication: Infection prophylaxis
     Dosage: A LOADING DOSE OF 70 MG PER M2 CASPOFUNGIN FOLLOWED BY 50 MG PER M2 DAILY.
     Route: 065
  5. AMPHOTERICIN B DEOXYCHOLATE [Suspect]
     Active Substance: AMPHOTERICIN B DEOXYCHOLATE
     Indication: Antifungal treatment
     Dosage: ADMINISTERED EVERY DAY
     Route: 065
  6. FOSCARNET SODIUM [Concomitant]
     Active Substance: FOSCARNET SODIUM
     Indication: Antiviral treatment
     Dosage: ADMINISTERED EVERY 8 H
     Route: 065
  7. CYCLOPHOSPHAMIDE [Concomitant]
     Active Substance: CYCLOPHOSPHAMIDE
     Indication: Graft versus host disease
     Route: 065
  8. TACROLIMUS [Concomitant]
     Active Substance: TACROLIMUS
     Indication: Graft versus host disease
     Route: 065
  9. MYCOPHENOLATE MOFETIL [Concomitant]
     Active Substance: MYCOPHENOLATE MOFETIL
     Indication: Graft versus host disease
     Route: 065
  10. FLUDARABINE [Concomitant]
     Active Substance: FLUDARABINE PHOSPHATE
     Indication: Product used for unknown indication
     Route: 065
  11. BUSULFAN [Concomitant]
     Active Substance: BUSULFAN
     Indication: Product used for unknown indication
     Route: 065
  12. THYMOCYTE IMMUNE GLOBULIN NOS [Concomitant]
     Active Substance: THYMOCYTE IMMUNE GLOBULIN NOS
     Indication: Product used for unknown indication
     Route: 065
  13. THIOTEPA [Concomitant]
     Active Substance: THIOTEPA
     Indication: Product used for unknown indication
     Route: 065
  14. POSACONAZOLE [Suspect]
     Active Substance: POSACONAZOLE
     Indication: Antifungal treatment
     Route: 048

REACTIONS (9)
  - Vascular pseudoaneurysm [Fatal]
  - Respiratory tract infection fungal [Not Recovered/Not Resolved]
  - Pleural effusion [Recovered/Resolved]
  - Atelectasis [Not Recovered/Not Resolved]
  - Fibrinous bronchitis [Recovered/Resolved]
  - Human herpesvirus 6 infection [Unknown]
  - Human polyomavirus infection [Unknown]
  - Condition aggravated [Unknown]
  - Drug ineffective [Unknown]
